FAERS Safety Report 18320505 (Version 1)
Quarter: 2020Q3

REPORT INFORMATION
  Report Type: Spontaneous
  Country: DE (occurrence: DE)
  Receive Date: 20200928
  Receipt Date: 20200928
  Transmission Date: 20201103
  Serious: Yes (Disabling)
  Sender: FDA-Public Use
  Company Number: DE-009507513-1601DEU000497

PATIENT
  Sex: Male

DRUGS (1)
  1. PROPECIA [Suspect]
     Active Substance: FINASTERIDE
     Indication: ALOPECIA
     Dosage: 1 MILLIGRAM, QD
     Route: 048
     Dates: start: 2002

REACTIONS (4)
  - Loss of libido [Not Recovered/Not Resolved]
  - Spermatozoa abnormal [Not Recovered/Not Resolved]
  - Anorgasmia [Not Recovered/Not Resolved]
  - Sperm concentration decreased [Not Recovered/Not Resolved]
